FAERS Safety Report 4901428-3 (Version None)
Quarter: 2006Q1

REPORT INFORMATION
  Report Type: 
  Country: None (occurrence: None)
  Receive Date: 20060201
  Receipt Date: 20060201
  Transmission Date: 20060701
  Serious: Yes (Hospitalization)
  Sender: FDA-Public Use
  Company Number: None

PATIENT
  Sex: Male
  Weight: 90.7194 kg

DRUGS (2)
  1. QUETIAPINE 100 MG [Suspect]
     Indication: POST-TRAUMATIC STRESS DISORDER
     Dosage: 100 MG TID PO
     Route: 048
     Dates: start: 20051020, end: 20060118
  2. QUETIAPINE [Suspect]
     Dosage: 500 MG HS PO
     Route: 048

REACTIONS (9)
  - BLOOD PRESSURE FLUCTUATION [None]
  - HYPERTHERMIA [None]
  - LETHARGY [None]
  - LEUKOCYTOSIS [None]
  - MENTAL STATUS CHANGES [None]
  - MYALGIA [None]
  - NEUROLEPTIC MALIGNANT SYNDROME [None]
  - SOMNOLENCE [None]
  - STUPOR [None]
